FAERS Safety Report 13312929 (Version 1)
Quarter: 2017Q1

REPORT INFORMATION
  Report Type: Spontaneous
  Country: HR (occurrence: HR)
  Receive Date: 20170309
  Receipt Date: 20170309
  Transmission Date: 20170428
  Serious: Yes (Other)
  Sender: FDA-Public Use
  Company Number: HR-TEVA-745973ACC

PATIENT
  Age: 33 Year
  Sex: Female
  Weight: 60 kg

DRUGS (2)
  1. KLAVOCIN BID TABLETE 1 G [Suspect]
     Active Substance: AMOXICILLIN\CLAVULANIC ACID
     Indication: PULPITIS DENTAL
     Dosage: 2 GRAM DAILY;
     Route: 048
     Dates: start: 20161016, end: 201611
  2. MEDAZOL [Suspect]
     Active Substance: METRONIDAZOLE
     Indication: PULPITIS DENTAL
     Dosage: 750 MILLIGRAM DAILY;
     Route: 048
     Dates: start: 20161016, end: 201611

REACTIONS (3)
  - Clostridium test positive [Not Recovered/Not Resolved]
  - Abdominal pain [Not Recovered/Not Resolved]
  - Diarrhoea [Not Recovered/Not Resolved]

NARRATIVE: CASE EVENT DATE: 20161016
